FAERS Safety Report 23897418 (Version 1)
Quarter: 2024Q2

REPORT INFORMATION
  Report Type: Spontaneous
  Country: AU (occurrence: AU)
  Receive Date: 20240524
  Receipt Date: 20240524
  Transmission Date: 20240715
  Serious: Yes (Hospitalization, Other)
  Sender: FDA-Public Use
  Company Number: AU-JNJFOC-20240546379

PATIENT
  Age: 37 Year
  Sex: Male

DRUGS (6)
  1. STELARA [Suspect]
     Active Substance: USTEKINUMAB
     Indication: Product used for unknown indication
     Route: 058
  2. ADALIMUMAB [Suspect]
     Active Substance: ADALIMUMAB\ISOPROPYL ALCOHOL
     Indication: Product used for unknown indication
     Route: 058
     Dates: start: 2015, end: 2016
  3. AZATHIOPRINE [Suspect]
     Active Substance: AZATHIOPRINE
     Indication: Product used for unknown indication
     Route: 065
  4. UPADACITINIB HEMIHYDRATE [Suspect]
     Active Substance: UPADACITINIB HEMIHYDRATE
     Indication: Crohn^s disease
     Route: 048
  5. VEDOLIZUMAB [Suspect]
     Active Substance: VEDOLIZUMAB
     Indication: Product used for unknown indication
     Route: 065
     Dates: start: 202305
  6. PROLIA [Concomitant]
     Active Substance: DENOSUMAB
     Indication: Product used for unknown indication
     Dosage: 6 MONTH

REACTIONS (17)
  - Crohn^s disease [Not Recovered/Not Resolved]
  - Blood calcium decreased [Unknown]
  - Blood phosphorus decreased [Unknown]
  - Hypocalcaemia [Recovered/Resolved]
  - Hypophosphataemia [Recovered/Resolved]
  - Obstruction [Unknown]
  - Stricturoplasty [Unknown]
  - C-reactive protein increased [Unknown]
  - Lymphopenia [Unknown]
  - Blood albumin decreased [Unknown]
  - Anorectal disorder [Unknown]
  - Paraesthesia oral [Unknown]
  - Faecal calprotectin increased [Not Recovered/Not Resolved]
  - Weight decreased [Unknown]
  - Drug ineffective [Unknown]
  - Dizziness [Unknown]
  - Off label use [Unknown]

NARRATIVE: CASE EVENT DATE: 20210101
